FAERS Safety Report 22250246 (Version 4)
Quarter: 2025Q2

REPORT INFORMATION
  Report Type: Spontaneous
  Country: DE (occurrence: DE)
  Receive Date: 20230425
  Receipt Date: 20250620
  Transmission Date: 20250716
  Serious: Yes (Other)
  Sender: BRISTOL-MYERS SQUIBB COMPANY
  Company Number: DE-MYLANLABS-2023M1039793

PATIENT
  Age: 17 Year

DRUGS (8)
  1. ABATACEPT [Suspect]
     Active Substance: ABATACEPT
     Indication: Immunomodulatory therapy
     Dosage: 10 MILLIGRAM/KILOGRAM, BIWEEKLY
     Route: 042
  2. TREOSULFAN [Suspect]
     Active Substance: TREOSULFAN
     Indication: Bone marrow conditioning regimen
  3. ATG-FRESENIUS [Suspect]
     Active Substance: LAPINE T-LYMPHOCYTE IMMUNE GLOBULIN
     Indication: Immunoglobulin therapy
  4. METHOTREXATE [Suspect]
     Active Substance: METHOTREXATE
     Indication: Prophylaxis against graft versus host disease
  5. FLUDARABINE [Suspect]
     Active Substance: FLUDARABINE PHOSPHATE
     Indication: Bone marrow conditioning regimen
  6. THIOTEPA [Suspect]
     Active Substance: THIOTEPA
     Indication: Bone marrow conditioning regimen
  7. CYCLOSPORINE [Suspect]
     Active Substance: CYCLOSPORINE
     Indication: Prophylaxis against graft versus host disease
  8. RITUXIMAB [Suspect]
     Active Substance: RITUXIMAB
     Indication: Immunomodulatory therapy

REACTIONS (7)
  - Cytomegalovirus colitis [Recovered/Resolved]
  - Parvovirus B19 infection [Recovered/Resolved]
  - Candida infection [Recovered/Resolved]
  - Human herpesvirus 6 infection [Recovered/Resolved]
  - Gastritis [Unknown]
  - Pharyngeal ulceration [Recovered/Resolved]
  - Off label use [Unknown]
